FAERS Safety Report 16137268 (Version 2)
Quarter: 2019Q2

REPORT INFORMATION
  Report Type: Report from Study
  Country: FR (occurrence: FR)
  Receive Date: 20190401
  Receipt Date: 20190418
  Transmission Date: 20190711
  Serious: Yes (Hospitalization, Other)
  Sender: FDA-Public Use
  Company Number: FR-SA-2018SA396066

PATIENT
  Age: 73 Year
  Weight: 75 kg

DRUGS (4)
  1. CABAZITAXEL [Suspect]
     Active Substance: CABAZITAXEL
     Dosage: 48 MG, QCY
     Route: 042
     Dates: start: 20181127, end: 20181127
  2. CABAZITAXEL [Suspect]
     Active Substance: CABAZITAXEL
     Dosage: 48 MG, QCY
     Route: 042
     Dates: start: 20181218, end: 20181218
  3. CABAZITAXEL [Suspect]
     Active Substance: CABAZITAXEL
     Dosage: 20 MG/M2, QCY
     Route: 042
  4. PREDNISONE. [Concomitant]
     Active Substance: PREDNISONE
     Dosage: UNK UNK, UNK
     Route: 065

REACTIONS (3)
  - Bone marrow failure [Recovered/Resolved]
  - Febrile neutropenia [Unknown]
  - Respiratory syncytial virus bronchiolitis [Recovered/Resolved]

NARRATIVE: CASE EVENT DATE: 20181225
